FAERS Safety Report 7371510-2 (Version None)
Quarter: 2011Q1

REPORT INFORMATION
  Report Type: 
  Country: None (occurrence: None)
  Receive Date: 20110324
  Receipt Date: 20110316
  Transmission Date: 20110831
  Serious: Yes (Hospitalization)
  Sender: FDA-Public Use
  Company Number: CH-US-EMD SERONO, INC.-7048242

PATIENT
  Sex: Male

DRUGS (2)
  1. REBIF [Suspect]
     Indication: MULTIPLE SCLEROSIS
     Route: 058
     Dates: start: 20030611
  2. REBIF [Suspect]
     Route: 058
     Dates: end: 20110131

REACTIONS (2)
  - INTRACRANIAL ANEURYSM [None]
  - LEUKOPENIA [None]
